FAERS Safety Report 12271175 (Version 2)
Quarter: 2016Q2

REPORT INFORMATION
  Report Type: Spontaneous
  Country: US (occurrence: US)
  Receive Date: 20160415
  Receipt Date: 20160510
  Transmission Date: 20160815
  Serious: Yes (Hospitalization)
  Sender: FDA-Public Use
  Company Number: US-ROCHE-1741041

PATIENT
  Sex: Male

DRUGS (16)
  1. NITROSTAT [Concomitant]
     Active Substance: NITROGLYCERIN
  2. PRILOSEC [Concomitant]
     Active Substance: OMEPRAZOLE MAGNESIUM
  3. METOLAZONE. [Concomitant]
     Active Substance: METOLAZONE
  4. ESBRIET [Suspect]
     Active Substance: PIRFENIDONE
     Indication: IDIOPATHIC PULMONARY FIBROSIS
     Route: 048
     Dates: start: 20150715
  5. TORASEMIDE [Concomitant]
     Active Substance: TORSEMIDE
  6. GABAPENTIN. [Concomitant]
     Active Substance: GABAPENTIN
  7. LASIX [Concomitant]
     Active Substance: FUROSEMIDE
  8. ASPRIN [Concomitant]
     Active Substance: ASPIRIN
  9. MUCINEX [Concomitant]
     Active Substance: GUAIFENESIN
  10. ROPINIROLE. [Concomitant]
     Active Substance: ROPINIROLE
  11. DESMOPRESSIN [Concomitant]
     Active Substance: DESMOPRESSIN
  12. FLUTICASONE PROPIONATE. [Concomitant]
     Active Substance: FLUTICASONE PROPIONATE
  13. DIGOXIN. [Concomitant]
     Active Substance: DIGOXIN
  14. PREDNISONE. [Concomitant]
     Active Substance: PREDNISONE
  15. VERAPAMIL [Concomitant]
     Active Substance: VERAPAMIL HYDROCHLORIDE
  16. IBUPROFEN. [Concomitant]
     Active Substance: IBUPROFEN

REACTIONS (3)
  - Pneumonia [Unknown]
  - Cardiac failure congestive [Unknown]
  - Diabetic ulcer [Unknown]
